FAERS Safety Report 6719582-X (Version None)
Quarter: 2010Q2

REPORT INFORMATION
  Report Type: 
  Country: None (occurrence: None)
  Receive Date: 20100510
  Receipt Date: 20100510
  Transmission Date: 20101027
  Serious: Yes (Life-Threatening, Hospitalization)
  Sender: FDA-Public Use
  Company Number: None

PATIENT
  Age: 30 Year
  Sex: Female
  Weight: 83.9154 kg

DRUGS (1)
  1. YASMIN [Suspect]
     Indication: CONTRACEPTION
     Dates: start: 20070601, end: 20080527

REACTIONS (1)
  - PULMONARY EMBOLISM [None]
